FAERS Safety Report 10946085 (Version 3)
Quarter: 2015Q3

REPORT INFORMATION
  Report Type: Spontaneous
  Country: US (occurrence: US)
  Receive Date: 20150322
  Receipt Date: 20150807
  Transmission Date: 20151125
  Serious: No
  Sender: FDA-Public Use
  Company Number: US-JNJFOC-20141103065

PATIENT
  Sex: Male

DRUGS (1)
  1. RISPERDAL [Suspect]
     Active Substance: RISPERIDONE
     Indication: MENTAL DISORDER
     Route: 048
     Dates: start: 200204, end: 200211

REACTIONS (4)
  - Emotional disorder [Unknown]
  - Gynaecomastia [Recovering/Resolving]
  - Feeling abnormal [Unknown]
  - Somnolence [Unknown]
